FAERS Safety Report 8116455-5 (Version None)
Quarter: 2012Q1

REPORT INFORMATION
  Report Type: 
  Country: None (occurrence: None)
  Receive Date: 20120120
  Receipt Date: 20120116
  Transmission Date: 20120608
  Serious: Yes (Other)
  Sender: FDA-Public Use
  Company Number: 2012030707

PATIENT
  Sex: Female

DRUGS (1)
  1. HIZENTRA [Suspect]
     Indication: PRIMARY IMMUNODEFICIENCY SYNDROME
     Dosage: (40 ML 1X/WEEK)
     Dates: start: 20111104

REACTIONS (3)
  - FATIGUE [None]
  - DRUG INEFFECTIVE [None]
  - NASOPHARYNGITIS [None]
